FAERS Safety Report 23542286 (Version 1)
Quarter: 2024Q1

REPORT INFORMATION
  Report Type: Spontaneous
  Country: FR (occurrence: FR)
  Receive Date: 20240220
  Receipt Date: 20240220
  Transmission Date: 20240410
  Serious: Yes (Other)
  Sender: FDA-Public Use
  Company Number: FR-ORPHALAN-FR-ORP-24-00018

PATIENT

DRUGS (1)
  1. TRIENTINE TETRAHYDROCHLORIDE [Suspect]
     Active Substance: TRIENTINE TETRAHYDROCHLORIDE
     Indication: Hepato-lenticular degeneration
     Dosage: UNK UNK, UNK
     Route: 065
     Dates: start: 20200815

REACTIONS (2)
  - Abscess intestinal [Recovered/Resolved]
  - Diverticulitis [Recovered/Resolved]

NARRATIVE: CASE EVENT DATE: 20210121
